FAERS Safety Report 20354332 (Version 1)
Quarter: 2022Q1

REPORT INFORMATION
  Report Type: Spontaneous
  Country: US (occurrence: US)
  Receive Date: 20220120
  Receipt Date: 20220120
  Transmission Date: 20220424
  Serious: No
  Sender: FDA-Public Use
  Company Number: US-LEADINGPHARMA-US-2022LEASPO00003

PATIENT
  Age: 63 Year
  Sex: Female

DRUGS (2)
  1. NIFEDIPINE [Suspect]
     Active Substance: NIFEDIPINE
     Indication: Hypertension
     Route: 065
  2. PROGRAF [Suspect]
     Active Substance: TACROLIMUS
     Indication: Liver transplant
     Route: 065
     Dates: start: 2010

REACTIONS (9)
  - Osteoporosis [Unknown]
  - Vitamin D decreased [Unknown]
  - Erythema [Unknown]
  - Peripheral swelling [Unknown]
  - Oedema [Unknown]
  - Flushing [Unknown]
  - Headache [Unknown]
  - Constipation [Unknown]
  - Pruritus [Unknown]
